FAERS Safety Report 24900803 (Version 2)
Quarter: 2025Q1

REPORT INFORMATION
  Report Type: Spontaneous
  Country: CA (occurrence: CA)
  Receive Date: 20250129
  Receipt Date: 20250310
  Transmission Date: 20250409
  Serious: Yes (Life-Threatening, Hospitalization, Disabling, Other)
  Sender: GILEAD
  Company Number: CA-GILEAD-2025-0701642

PATIENT
  Age: 68 Year
  Sex: Male
  Weight: 46 kg

DRUGS (15)
  1. YESCARTA [Suspect]
     Active Substance: AXICABTAGENE CILOLEUCEL
     Indication: Non-Hodgkin^s lymphoma
     Route: 058
     Dates: start: 20240621, end: 20240621
  2. ACETAMINOPHEN [Concomitant]
     Active Substance: ACETAMINOPHEN
  3. ALLOPURINOL [Concomitant]
     Active Substance: ALLOPURINOL
  4. CHOLESTYRAMINE [Concomitant]
     Active Substance: CHOLESTYRAMINE
  5. COLESEVELAM HYDROCHLORIDE [Concomitant]
     Active Substance: COLESEVELAM HYDROCHLORIDE
  6. DEXAMETHASONE [Concomitant]
     Active Substance: DEXAMETHASONE
  7. DUTASTERIDE [Concomitant]
     Active Substance: DUTASTERIDE
  8. FLUCONAZOLE [Concomitant]
     Active Substance: FLUCONAZOLE
  9. METOPROLOL [Concomitant]
     Active Substance: METOPROLOL
  10. POTASSIUM [Concomitant]
     Active Substance: POTASSIUM
  11. PREGABALIN [Concomitant]
     Active Substance: PREGABALIN
  12. VALSARTAN [Concomitant]
     Active Substance: VALSARTAN
  13. VANCOMYCIN [Concomitant]
     Active Substance: VANCOMYCIN
  14. OLANZAPINE [Concomitant]
     Active Substance: OLANZAPINE
  15. MORPHINE [Concomitant]
     Active Substance: MORPHINE

REACTIONS (3)
  - Cerebrovascular accident [Recovered/Resolved with Sequelae]
  - Aphasia [Recovered/Resolved with Sequelae]
  - Seizure [Recovered/Resolved with Sequelae]

NARRATIVE: CASE EVENT DATE: 20240704
